FAERS Safety Report 11659688 (Version 5)
Quarter: 2015Q4

REPORT INFORMATION
  Report Type: Spontaneous
  Country: IT (occurrence: IT)
  Receive Date: 20151026
  Receipt Date: 20151210
  Transmission Date: 20160304
  Serious: Yes (Hospitalization)
  Sender: FDA-Public Use
  Company Number: IT-TEVA-602087ACC

PATIENT
  Age: 46 Year
  Sex: Male

DRUGS (3)
  1. PAROXETINE [Suspect]
     Active Substance: PAROXETINE\PAROXETINE HYDROCHLORIDE
     Indication: INTENTIONAL SELF-INJURY
     Dosage: 28 DF TOTAL IN LAST EVENING AT 9:00 PM
     Route: 048
     Dates: start: 20150915, end: 20150916
  2. MINIAS - 2.5 MG/ML GOCCE ORALI SOLUZIONE - BAYER S.P.A. [Suspect]
     Active Substance: LORMETAZEPAM
     Indication: INTENTIONAL SELF-INJURY
     Dosage: 20 ML TOTAL, 1 BOTTLE IN LAST EVENING AT 9:00 PM
     Route: 048
     Dates: start: 20150915, end: 20150916
  3. EN [Suspect]
     Active Substance: DELORAZEPAM
     Indication: INTENTIONAL SELF-INJURY
     Dosage: 20 ML TOTAL, IN LAST EVENING AT 9:00 PM
     Route: 048
     Dates: start: 20150915, end: 20150916

REACTIONS (3)
  - Intentional self-injury [Unknown]
  - Somnolence [Unknown]
  - Drug abuse [Unknown]

NARRATIVE: CASE EVENT DATE: 20150916
